FAERS Safety Report 13555210 (Version 1)
Quarter: 2017Q2

REPORT INFORMATION
  Report Type: Spontaneous
  Country: US (occurrence: US)
  Receive Date: 20170517
  Receipt Date: 20170517
  Transmission Date: 20170830
  Serious: Yes (Other)
  Sender: FDA-Public Use
  Company Number: US-PFIZER INC-2017209617

PATIENT
  Sex: Female

DRUGS (3)
  1. XELJANZ XR [Suspect]
     Active Substance: TOFACITINIB CITRATE
     Indication: RHEUMATOID ARTHRITIS
     Dosage: 11 MG, UNK
  2. PREDNISONE. [Concomitant]
     Active Substance: PREDNISONE
     Dosage: UNK
  3. METHOTREXATE. [Concomitant]
     Active Substance: METHOTREXATE
     Dosage: UNK

REACTIONS (22)
  - Lower limb fracture [Unknown]
  - Joint stiffness [Unknown]
  - Somnolence [Unknown]
  - Joint injury [Unknown]
  - Laboratory test abnormal [Unknown]
  - Rheumatoid factor increased [Unknown]
  - Limb injury [Unknown]
  - Eye pruritus [Unknown]
  - Musculoskeletal discomfort [Unknown]
  - Hand deformity [Unknown]
  - Red blood cell count decreased [Unknown]
  - Feeling hot [Unknown]
  - Dry eye [Unknown]
  - Joint effusion [Unknown]
  - Fall [Unknown]
  - Muscle spasms [Unknown]
  - Swelling [Unknown]
  - Blood urea increased [Unknown]
  - Tenderness [Unknown]
  - Blood creatinine increased [Unknown]
  - Antinuclear antibody positive [Unknown]
  - Rheumatoid nodule [Unknown]
